FAERS Safety Report 4549162-6 (Version None)
Quarter: 2005Q1

REPORT INFORMATION
  Report Type: 
  Country: None (occurrence: None)
  Receive Date: 20050106
  Receipt Date: 20041221
  Transmission Date: 20050727
  Serious: Yes (Hospitalization)
  Sender: FDA-Public Use
  Company Number: 206374

PATIENT
  Age: 63 Year
  Sex: Female

DRUGS (10)
  1. AVONEX [Suspect]
     Indication: MULTIPLE SCLEROSIS
     Dosage: 30 UG; QW; IM
     Route: 030
     Dates: start: 20010101, end: 20030801
  2. AVONEX [Suspect]
     Indication: MULTIPLE SCLEROSIS
     Dosage: 30 UG; QW; IM
     Route: 030
     Dates: start: 20030101
  3. NORVASC [Concomitant]
  4. CELEBREX [Concomitant]
  5. BACLOFEN [Concomitant]
  6. DETROL [Concomitant]
  7. AMANTADINE [Concomitant]
  8. FLEXERIL [Concomitant]
  9. NIACIN [Concomitant]
  10. TIMOLOL MALEATE [Concomitant]

REACTIONS (1)
  - OSTEOARTHRITIS [None]
